FAERS Safety Report 9880002 (Version 6)
Quarter: 2014Q2

REPORT INFORMATION
  Report Type: Report from Study
  Country: CA (occurrence: CA)
  Receive Date: 20140207
  Receipt Date: 20140505
  Transmission Date: 20141212
  Serious: Yes (Other)
  Sender: FDA-Public Use
  Company Number: CA-ROCHE-1306794

PATIENT
  Age: 32 Year
  Sex: Female
  Weight: 54.4 kg

DRUGS (7)
  1. ACTEMRA [Suspect]
     Indication: RHEUMATOID ARTHRITIS
     Route: 042
     Dates: start: 20131015
  2. ACTEMRA [Suspect]
     Route: 042
     Dates: start: 20131206
  3. NAPROXEN [Concomitant]
  4. SYNTHROID [Concomitant]
  5. FOLIC ACID [Concomitant]
  6. METHOTREXATE [Concomitant]
  7. VITAMIN E [Concomitant]

REACTIONS (8)
  - Panic attack [Unknown]
  - Nasopharyngitis [Not Recovered/Not Resolved]
  - Gastroenteritis viral [Recovered/Resolved]
  - Oral herpes [Recovered/Resolved]
  - Abdominal discomfort [Recovered/Resolved]
  - Genital herpes [Recovered/Resolved]
  - Oropharyngeal pain [Not Recovered/Not Resolved]
  - Cough [Not Recovered/Not Resolved]
